FAERS Safety Report 4638814-5 (Version None)
Quarter: 2005Q2

REPORT INFORMATION
  Report Type: 
  Country: None (occurrence: None)
  Receive Date: 20050418
  Receipt Date: 20050418
  Transmission Date: 20051028
  Serious: Yes (Other)
  Sender: FDA-Public Use
  Company Number: None

PATIENT
  Age: 52 Year
  Sex: Male
  Weight: 136.9863 kg

DRUGS (3)
  1. PRAVACHOL [Suspect]
     Indication: BLOOD CHOLESTEROL INCREASED
     Dosage: 20MG    DAY   ORAL
     Route: 048
     Dates: start: 20050104, end: 20050303
  2. SOMA [Concomitant]
  3. VICODIN [Concomitant]

REACTIONS (1)
  - MUSCULAR WEAKNESS [None]
